FAERS Safety Report 12418501 (Version 2)
Quarter: 2016Q3

REPORT INFORMATION
  Report Type: Spontaneous
  Country: US (occurrence: US)
  Receive Date: 20160531
  Receipt Date: 20160906
  Transmission Date: 20161109
  Serious: Yes (Other)
  Sender: FDA-Public Use
  Company Number: US-ASTRAZENECA-2016SE55237

PATIENT
  Sex: Female

DRUGS (15)
  1. TAGRISSO [Suspect]
     Active Substance: OSIMERTINIB
     Indication: METASTASES TO LUNG
     Route: 048
  2. FENTANYL. [Concomitant]
     Active Substance: FENTANYL
     Dosage: 30.0MG UNKNOWN
     Route: 065
  3. LANSOPRAZOLE. [Concomitant]
     Active Substance: LANSOPRAZOLE
     Dosage: 30.0MG UNKNOWN
     Route: 065
  4. LYRICA [Concomitant]
     Active Substance: PREGABALIN
     Dosage: 50.0MG UNKNOWN
     Route: 065
  5. GABAPENTIN. [Concomitant]
     Active Substance: GABAPENTIN
     Dosage: 300.0MG UNKNOWN
     Route: 065
  6. OMEPRAZOLE. [Concomitant]
     Active Substance: OMEPRAZOLE
     Dosage: 30.0MG UNKNOWN
     Route: 065
  7. VENTOLINHFA [Concomitant]
     Dosage: 90.0UG UNKNOWN
     Route: 065
  8. ONDANSETRON [Concomitant]
     Active Substance: ONDANSETRON
     Dosage: 30.0MG UNKNOWN
     Route: 065
  9. TRAMADOL. [Concomitant]
     Active Substance: TRAMADOL
     Dosage: 50.0MG UNKNOWN
     Route: 065
  10. IMODIUM [Concomitant]
     Active Substance: LOPERAMIDE HYDROCHLORIDE
     Dosage: 30.0MG UNKNOWN
     Route: 065
  11. LIDOCAINE. [Concomitant]
     Active Substance: LIDOCAINE
     Dosage: 5.0% UNKNOWN
     Route: 065
  12. OXYCODONE [Concomitant]
     Active Substance: OXYCODONE
     Dosage: 1.0% UNKNOWN
     Route: 065
  13. HYDROCODON-ACETAMINOPHEN [Concomitant]
     Active Substance: ACETAMINOPHEN\HYDROCODONE
     Dosage: 1.0% UNKNOWN
     Route: 065
  14. CLINDAMYCIN PHOSPHATE. [Concomitant]
     Active Substance: CLINDAMYCIN PHOSPHATE
     Dosage: 1.0% UNKNOWN
     Route: 065
  15. DRONABINOL. [Concomitant]
     Active Substance: DRONABINOL

REACTIONS (11)
  - Decreased appetite [Unknown]
  - Yellow skin [Unknown]
  - Weight decreased [Unknown]
  - Contusion [Unknown]
  - Nausea [Unknown]
  - Musculoskeletal chest pain [Unknown]
  - Gingival pain [Unknown]
  - Onychoclasis [Unknown]
  - Ingrowing nail [Unknown]
  - Malignant neoplasm progression [Unknown]
  - Gastrointestinal pain [Unknown]
